FAERS Safety Report 4758607-8 (Version None)
Quarter: 2005Q3

REPORT INFORMATION
  Report Type: 
  Country: None (occurrence: None)
  Receive Date: 20050830
  Receipt Date: 20050830
  Transmission Date: 20060218
  Serious: Yes (Hospitalization)
  Sender: FDA-Public Use
  Company Number: None

PATIENT
  Age: 66 Year
  Sex: Male
  Weight: 104.3273 kg

DRUGS (1)
  1. NAFCILLIN     2GM [Suspect]
     Indication: BACTERAEMIA
     Dosage: 6GM  DAILY   IV
     Route: 042
     Dates: start: 20050720, end: 20050804

REACTIONS (3)
  - CLOSTRIDIUM COLITIS [None]
  - NAUSEA [None]
  - VOMITING [None]
